FAERS Safety Report 6015143-9 (Version None)
Quarter: 2008Q4

REPORT INFORMATION
  Report Type: 
  Country: None (occurrence: None)
  Receive Date: 20081219
  Receipt Date: 20081219
  Transmission Date: 20090506
  Serious: Yes (Other)
  Sender: FDA-Public Use
  Company Number: None

PATIENT
  Sex: Female
  Weight: 28 kg

DRUGS (1)
  1. LEVETIRACETAM [Suspect]
     Indication: EPILEPSY
     Dosage: 750MG BID PO
     Route: 048
     Dates: start: 20081202, end: 20081212

REACTIONS (4)
  - CONDITION AGGRAVATED [None]
  - CONVULSION [None]
  - EDUCATIONAL PROBLEM [None]
  - PRODUCT QUALITY ISSUE [None]
